FAERS Safety Report 7418486-7 (Version None)
Quarter: 2011Q2

REPORT INFORMATION
  Report Type: 
  Country: None (occurrence: None)
  Receive Date: 20110415
  Receipt Date: 20110407
  Transmission Date: 20111010
  Serious: Yes (Hospitalization)
  Sender: FDA-Public Use
  Company Number: ES-MERCK-1104ESP00018

PATIENT
  Age: 66 Year
  Sex: Male

DRUGS (6)
  1. SINEMET [Suspect]
     Indication: PARKINSON'S DISEASE
     Route: 048
     Dates: start: 20010101, end: 20110201
  2. SIMVASTATIN [Concomitant]
     Indication: DYSLIPIDAEMIA
     Route: 048
  3. ENTACAPONE [Concomitant]
     Indication: PARKINSON'S DISEASE
     Route: 048
  4. AMLODIPINE [Concomitant]
     Indication: HYPERTENSION
     Route: 048
  5. ROTIGOTINE [Concomitant]
     Indication: PARKINSON'S DISEASE
     Route: 061
  6. SPIRONOLACTONE [Concomitant]
     Indication: HYPERTENSION
     Route: 048

REACTIONS (2)
  - PSYCHOTIC DISORDER [None]
  - WRONG DRUG ADMINISTERED [None]
